FAERS Safety Report 4732163-2 (Version None)
Quarter: 2005Q3

REPORT INFORMATION
  Report Type: 
  Country: None (occurrence: None)
  Receive Date: 20050725
  Receipt Date: 20030618
  Transmission Date: 20060218
  Serious: Yes (Death)
  Sender: FDA-Public Use
  Company Number: USA-2003-0007506

PATIENT
  Age: 42 Year
  Sex: Female

DRUGS (2)
  1. MORPHINE SULFATE [Suspect]
     Route: 065
  2. OXYCODONE HCL [Suspect]
     Route: 065

REACTIONS (1)
  - ACCIDENTAL OVERDOSE [None]
